FAERS Safety Report 5361649-5 (Version None)
Quarter: 2007Q2

REPORT INFORMATION
  Report Type: 
  Country: None (occurrence: None)
  Receive Date: 20070619
  Receipt Date: 20070611
  Transmission Date: 20071010
  Serious: Yes (Hospitalization)
  Sender: FDA-Public Use
  Company Number: US-BAYER-200711286BWH

PATIENT
  Age: 71 Year
  Sex: Male

DRUGS (2)
  1. NEXAVAR [Suspect]
     Indication: CLEAR CELL CARCINOMA OF THE KIDNEY
     Dosage: TOTAL DAILY DOSE: 800 MG  UNIT DOSE: 200 MG
     Route: 048
     Dates: start: 20070301, end: 20070401
  2. ATENOLOL [Concomitant]
     Route: 048

REACTIONS (12)
  - ANOREXIA [None]
  - AZOTAEMIA [None]
  - FATIGUE [None]
  - HYPERKALAEMIA [None]
  - MALAISE [None]
  - METABOLIC ACIDOSIS [None]
  - NAUSEA [None]
  - PANCYTOPENIA [None]
  - PERIRECTAL ABSCESS [None]
  - RENAL FAILURE ACUTE [None]
  - RENAL TUBULAR NECROSIS [None]
  - VOMITING [None]
